FAERS Safety Report 22825698 (Version 11)
Quarter: 2024Q2

REPORT INFORMATION
  Report Type: Spontaneous
  Country: CA (occurrence: CA)
  Receive Date: 20230816
  Receipt Date: 20240624
  Transmission Date: 20240717
  Serious: Yes (Other)
  Sender: FDA-Public Use
  Company Number: CA-CELLTRION INC.-2023CA016142

PATIENT

DRUGS (11)
  1. INFLECTRA [Suspect]
     Active Substance: INFLIXIMAB-DYYB
     Indication: Colitis ulcerative
     Dosage: 1200 MG WEEK 0 (HOSPITAL INFUSION)
     Route: 042
     Dates: start: 20230722, end: 20230722
  2. INFLECTRA [Suspect]
     Active Substance: INFLIXIMAB-DYYB
     Dosage: 1200 MG Q 2, 6 WEEKS, THEN EVERY 8 WEEKS, INDUCTION DOSE 2 WEEKS AND 3 DAYS (FOR WEEK 2)
     Route: 042
     Dates: start: 20230808, end: 20230907
  3. INFLECTRA [Suspect]
     Active Substance: INFLIXIMAB-DYYB
     Dosage: 1200 MG, Q 2, 6 WEEKS, THEN EVERY 8 WEEKS
     Route: 042
     Dates: start: 20230907
  4. INFLECTRA [Suspect]
     Active Substance: INFLIXIMAB-DYYB
     Dosage: 10 MG/KG, EVERY 6 WEEKS, URGENT DOSE THEN EVERY 6 WEEKS (1300 MG)
     Route: 042
     Dates: start: 20231218
  5. INFLECTRA [Suspect]
     Active Substance: INFLIXIMAB-DYYB
     Dosage: 10 MG/KG, EVERY 6 WEEKS, URGENT DOSE THEN EVERY 6 WEEKS (1200 MG, 6 WEEKS)
     Route: 042
     Dates: start: 20240129
  6. INFLECTRA [Suspect]
     Active Substance: INFLIXIMAB-DYYB
     Dosage: 10 MG/KG, EVERY 6 WEEKS, URGENT DOSE THEN EVERY 6 WEEKS (1300 MG, 6 WEEKS)
     Route: 042
     Dates: start: 20240311
  7. INFLECTRA [Suspect]
     Active Substance: INFLIXIMAB-DYYB
     Dosage: 1300 MG, EVERY 6 WEEKS (URGENT DOSE THEN EVERY 6 WEEKS)
     Route: 042
     Dates: start: 20240422
  8. INFLECTRA [Suspect]
     Active Substance: INFLIXIMAB-DYYB
     Dosage: 10 MG/KG EVERY 4 WEEKS (1200MG)
     Route: 042
     Dates: start: 20240522
  9. INFLECTRA [Suspect]
     Active Substance: INFLIXIMAB-DYYB
     Dosage: 10 MG/KG EVERY 4 WEEKS (1200MG AFTER 3 WEEKS AND 5 DAYS)
     Route: 042
     Dates: start: 20240617
  10. CODEINE [Concomitant]
     Active Substance: CODEINE
     Dosage: 1 DF
  11. PREDNISONE [Concomitant]
     Active Substance: PREDNISONE
     Dosage: 40 MG, (AND TAPERING DOWN)

REACTIONS (7)
  - Condition aggravated [Recovered/Resolved]
  - Transfusion [Unknown]
  - Gastrointestinal disorder [Unknown]
  - Weight decreased [Not Recovered/Not Resolved]
  - Off label use [Unknown]
  - Off label use [Unknown]
  - Inappropriate schedule of product administration [Unknown]

NARRATIVE: CASE EVENT DATE: 20230101
